FAERS Safety Report 10094702 (Version 1)
Quarter: 2014Q2

REPORT INFORMATION
  Report Type: Spontaneous
  Country: CH (occurrence: None)
  Receive Date: 20140421
  Receipt Date: 20140421
  Transmission Date: 20141212
  Serious: Yes (Other)
  Sender: FDA-Public Use
  Company Number: None

PATIENT
  Age: 71 Year
  Sex: Male
  Weight: 92.99 kg

DRUGS (3)
  1. DIOVAN [Suspect]
     Indication: HYPERTENSION
     Dosage: ONE TABLET, QD, ORAL
     Route: 048
     Dates: start: 20140303, end: 20140410
  2. DIOVAN [Suspect]
     Indication: CORONARY ARTERY DISEASE
     Dosage: ONE TABLET, QD, ORAL
     Route: 048
     Dates: start: 20140303, end: 20140410
  3. CELEXA [Concomitant]

REACTIONS (5)
  - Pruritus [None]
  - Jaundice [None]
  - Fatigue [None]
  - Chromaturia [None]
  - Faeces pale [None]
